FAERS Safety Report 17443249 (Version 3)
Quarter: 2020Q3

REPORT INFORMATION
  Report Type: Spontaneous
  Country: CA (occurrence: CA)
  Receive Date: 20200221
  Receipt Date: 20200925
  Transmission Date: 20201102
  Serious: Yes (Hospitalization, Other)
  Sender: FDA-Public Use
  Company Number: CA-009507513-2002CAN007677

PATIENT
  Age: 78 Year
  Sex: Female

DRUGS (32)
  1. XOLAIR [Suspect]
     Active Substance: OMALIZUMAB
     Indication: CHRONIC SPONTANEOUS URTICARIA
     Dosage: 300 MILLIGRAM, DOSAGE FORM: NOT SPECIFIED
     Route: 058
  2. CHOLECALCIFEROL [Concomitant]
     Active Substance: CHOLECALCIFEROL
     Dosage: 1.0 DOSAGE FORMS 1 EVERY 1 WEEKS, QW
     Route: 065
  3. PANTOPRAZOLE [Concomitant]
     Active Substance: PANTOPRAZOLE
     Dosage: DOSAGE FORM: NOT SPECIFIED
     Route: 065
  4. CODEINE [Suspect]
     Active Substance: CODEINE
     Indication: PRODUCT USED FOR UNKNOWN INDICATION
     Dosage: DOSAGE FORM: NOT SPECIFIED
     Route: 065
  5. CIPROFLOXACIN. [Concomitant]
     Active Substance: CIPROFLOXACIN
     Dosage: 1 DOSAGE FORM, 2 EVERY 1 DAYS; DOSAGE FORM:NOT SPECIFIED
     Route: 048
  6. PREDNISONE. [Concomitant]
     Active Substance: PREDNISONE
     Dosage: 1.0 DOSAGE FORMS 1 EVERY 1 DAYS; DOSAGE FORM: NOT SPECIFIED
     Route: 048
  7. DICLOFENAC [Concomitant]
     Active Substance: DICLOFENAC
     Dosage: UNK
     Route: 065
  8. RANITIDINE. [Suspect]
     Active Substance: RANITIDINE
     Indication: GASTRIC DISORDER
     Dosage: 150 MILLIGRAM, 2 EVERY 1 DAY; DOSAGE FORM:NOT SPECIFIED, BID
     Route: 048
  9. TARO WARFARIN [Concomitant]
     Dosage: 1.0 DOSAGE FORMS 1 EVERY 1 DAYS, QD
     Route: 065
  10. RAMIPRIL. [Suspect]
     Active Substance: RAMIPRIL
     Indication: PRODUCT USED FOR UNKNOWN INDICATION
     Dosage: DOSAGE FORM: NOT SPECIFIED
     Route: 065
  11. XOLAIR [Suspect]
     Active Substance: OMALIZUMAB
     Dosage: 300.0 MILLIGRAM 1 EVERY 1 DAYS, QD
     Route: 058
  12. AIROMIR [Concomitant]
     Active Substance: ALBUTEROL SULFATE
     Dosage: 1.0 DOSAGE FORMS; DOSAGE FORM:METERED?DOSE AEROSOL
  13. EBASTINE [Concomitant]
     Active Substance: EBASTINE
     Dosage: 1.0 DOSAGE FORMS 1 EVERY 1 DAYS, QD
     Route: 048
  14. PANTOPRAZOLE [Concomitant]
     Active Substance: PANTOPRAZOLE
     Dosage: 1.0 DOSAGE FORMS 1 EVERY 1 DAYS, QD
     Route: 065
  15. REACTINE [Concomitant]
     Dosage: 1.0 DOSAGE FORMS 1 EVERY 1 DAYS; DOSAGE FORM: NOT SPECIFIED, QD
     Route: 048
  16. DIPHENHYDRAMINE. [Concomitant]
     Active Substance: DIPHENHYDRAMINE
     Indication: HYPERSENSITIVITY
     Dosage: 1.0 DOSAGE FORMS 4 EVERY 1 DAYS
     Route: 065
  17. FOSAMAX [Concomitant]
     Active Substance: ALENDRONATE SODIUM
     Dosage: 1 DOSAGE FORMS, 1 EVERY 1 WEEKS, QW
     Route: 065
  18. EBASTINE [Concomitant]
     Active Substance: EBASTINE
     Dosage: UNK
     Route: 065
  19. PULMICORT TURBUHALER [Concomitant]
     Active Substance: BUDESONIDE
     Dosage: 1.0 DOSAGE FORMS 2 EVERY 1 DAYS; DOSAGE FORM: NOT SPECIFIED, BID
     Route: 065
  20. AERIUS (DESLORATADINE) [Concomitant]
     Active Substance: DESLORATADINE
     Dosage: UNK
     Route: 065
  21. AMLODIPINE [Concomitant]
     Active Substance: AMLODIPINE BESYLATE
     Dosage: 2 DOSAGE FORM, 1 EVERY 1 DAYS, QD
     Route: 065
  22. DOCUSATE SODIUM. [Concomitant]
     Active Substance: DOCUSATE SODIUM
     Indication: CONSTIPATION
     Dosage: 1 DOSAGE FORM, 3 EVERY 1 DAYS, TID
     Route: 065
  23. LOVENOX [Concomitant]
     Active Substance: ENOXAPARIN SODIUM
     Dosage: 1.0 DOSAGE FORMS 1 EVERY 1 DAYS; DOSAGE FORM:SOLUTION SUBCUTANEOUS, QD
     Route: 065
  24. VOLTAREN [Concomitant]
     Active Substance: DICLOFENAC SODIUM
     Dosage: DOSAGE FORM: NOT SPECIFIED
     Route: 065
  25. LEVOFLOXACIN. [Concomitant]
     Active Substance: LEVOFLOXACIN
     Dosage: UNK
     Route: 065
  26. SINGULAIR [Suspect]
     Active Substance: MONTELUKAST SODIUM
     Indication: PRODUCT USED FOR UNKNOWN INDICATION
     Dosage: 10 MILLIGRAM, 1 EVERY 1 DAY; DOSAGE FORM: NOT SPECIFIED,QD
     Route: 048
  27. XOLAIR [Suspect]
     Active Substance: OMALIZUMAB
     Dosage: 150 MILLIGRAM, DOSAGE FORM: NOT SPECIFIED
     Route: 058
  28. APO PREDNISONE [Concomitant]
     Active Substance: PREDNISONE
     Dosage: 2 DOSAGE FORM, 1 EVERY 1 DAYS, QD
     Route: 048
  29. CHOLECALCIFEROL [Concomitant]
     Active Substance: CHOLECALCIFEROL
     Dosage: DOSAGE FORM: NOT SPECIFIED
     Route: 065
  30. EPIPEN [Concomitant]
     Active Substance: EPINEPHRINE
     Indication: HYPERSENSITIVITY
     Dosage: DOSAGE FORM: SOLUTION INTRAMUSCULAR
     Route: 058
  31. METRONIDAZOLE. [Concomitant]
     Active Substance: METRONIDAZOLE
     Dosage: 2.0 DOSAGE FORMS 3 EVERY 1 DAYS; DOSAGE FORM: NOT SPECIFIED, TID
     Route: 065
  32. OMEGA?3 ACIDS [Concomitant]
     Active Substance: OMEGA-3 FATTY ACIDS
     Dosage: UNK
     Route: 065

REACTIONS (14)
  - Dysphagia [Recovered/Resolved]
  - Eating disorder [Recovered/Resolved]
  - Food allergy [Recovered/Resolved]
  - Blood pressure systolic increased [Recovered/Resolved]
  - Lip disorder [Recovered/Resolved]
  - Paraesthesia oral [Recovered/Resolved]
  - Sensitisation [Recovered/Resolved]
  - Lip swelling [Recovered/Resolved]
  - Hypersensitivity [Recovered/Resolved]
  - Throat tightness [Recovered/Resolved]
  - Dyspnoea [Recovered/Resolved]
  - Blood pressure increased [Recovered/Resolved]
  - Swollen tongue [Recovered/Resolved]
  - Urticaria [Recovered/Resolved]
